FAERS Safety Report 25479569 (Version 1)
Quarter: 2025Q2

REPORT INFORMATION
  Report Type: Spontaneous
  Country: US (occurrence: US)
  Receive Date: 20250625
  Receipt Date: 20250625
  Transmission Date: 20250717
  Serious: No
  Sender: SANOFI AVENTIS
  Company Number: US-SA-2025SA178955

PATIENT
  Sex: Female
  Weight: 72.698 kg

DRUGS (9)
  1. DUPIXENT [Suspect]
     Active Substance: DUPILUMAB
     Indication: Pruritus
     Dosage: 300 MG, QOW
     Route: 058
     Dates: start: 2023, end: 2025
  2. FLONASE ALLERGY RELIEF [Concomitant]
     Active Substance: FLUTICASONE PROPIONATE
  3. ZYRTEC-D [Concomitant]
     Active Substance: CETIRIZINE HYDROCHLORIDE\PSEUDOEPHEDRINE HYDROCHLORIDE
  4. FERROUS FUMARATE [Concomitant]
     Active Substance: FERROUS FUMARATE
  5. ATORVASTATIN CALCIUM [Concomitant]
     Active Substance: ATORVASTATIN CALCIUM
  6. PROPANTHELINE BROMIDE [Concomitant]
     Active Substance: PROPANTHELINE BROMIDE
  7. GLYBURIDE\METFORMIN HYDROCHLORIDE [Concomitant]
     Active Substance: GLYBURIDE\METFORMIN HYDROCHLORIDE
  8. AMLODIPINE + ATORVASTATIN [Concomitant]
  9. PANTOPRAZOLE SODIUM [Concomitant]
     Active Substance: PANTOPRAZOLE SODIUM

REACTIONS (1)
  - Drug ineffective for unapproved indication [Unknown]
